FAERS Safety Report 4313086-X (Version None)
Quarter: 2004Q1

REPORT INFORMATION
  Report Type: 
  Country: None (occurrence: None)
  Receive Date: 20040304
  Receipt Date: 20040218
  Transmission Date: 20041129
  Serious: Yes (Life-Threatening)
  Sender: FDA-Public Use
  Company Number: EWC040238093

PATIENT
  Age: 2 Year
  Sex: Male

DRUGS (2)
  1. HUMATROPE [Suspect]
     Indication: GROWTH HORMONE DEFICIENCY
     Dosage: 0.7 IU/1 DAY
     Dates: start: 20040211, end: 20040216
  2. THYROXINE [Concomitant]

REACTIONS (4)
  - AURICULAR SWELLING [None]
  - FACE OEDEMA [None]
  - INTRACRANIAL PRESSURE INCREASED [None]
  - OEDEMA PERIPHERAL [None]
